FAERS Safety Report 9291377 (Version 1)
Quarter: 2013Q2

REPORT INFORMATION
  Report Type: Spontaneous
  Country: US (occurrence: US)
  Receive Date: 20130515
  Receipt Date: 20130515
  Transmission Date: 20140414
  Serious: No
  Sender: FDA-Public Use
  Company Number: US-009507513-1305USA006842

PATIENT
  Sex: Female

DRUGS (1)
  1. PEGINTRON [Suspect]
     Route: 058

REACTIONS (3)
  - Device issue [Unknown]
  - No adverse event [Unknown]
  - Product quality issue [Unknown]
